FAERS Safety Report 5777734-X (Version None)
Quarter: 2008Q2

REPORT INFORMATION
  Report Type: 
  Country: None (occurrence: None)
  Receive Date: 20080618
  Receipt Date: 20080530
  Transmission Date: 20081010
  Serious: No
  Sender: FDA-Public Use
  Company Number: US-BOEHRINGER INGELHEIM GMBH, GERMANY-2008-BP-08471BP

PATIENT
  Age: 21 Year
  Sex: Female

DRUGS (1)
  1. ZANTAC 75 [Suspect]
     Route: 048
     Dates: start: 20080529, end: 20080529

REACTIONS (1)
  - EYE SWELLING [None]
